FAERS Safety Report 4705490-2 (Version None)
Quarter: 2005Q2

REPORT INFORMATION
  Report Type: 
  Country: None (occurrence: None)
  Receive Date: 20050629
  Receipt Date: 20050127
  Transmission Date: 20051028
  Serious: Yes (Hospitalization)
  Sender: FDA-Public Use
  Company Number: 200217387US

PATIENT
  Age: 55 Year
  Sex: Female

DRUGS (5)
  1. CARBOPLATIN [Suspect]
     Indication: NEOPLASM MALIGNANT
     Dosage: QW; IV
     Route: 042
     Dates: start: 20011217, end: 20020128
  2. CHEMORADIATION [Suspect]
     Indication: NEOPLASM MALIGNANT
     Dates: start: 20020412, end: 20020412
  3. ZOLOFT [Concomitant]
  4. DURAGESIC-100 [Concomitant]
  5. PERCOCET [Concomitant]

REACTIONS (2)
  - CHEST PAIN [None]
  - LUNG INFILTRATION [None]
